FAERS Safety Report 7870094-X (Version None)
Quarter: 2011Q4

REPORT INFORMATION
  Report Type: 
  Country: None (occurrence: None)
  Receive Date: 20111028
  Receipt Date: 20110113
  Transmission Date: 20120403
  Serious: No
  Sender: FDA-Public Use
  Company Number: US-AMGEN-USASP2010005719

PATIENT
  Age: 55 Year
  Sex: Male

DRUGS (2)
  1. ENBREL [Suspect]
     Indication: PROSTATIC SPECIFIC ANTIGEN
  2. ENBREL [Suspect]
     Indication: PSORIATIC ARTHROPATHY
     Dosage: 50 MG, QWK
     Dates: start: 20100909

REACTIONS (5)
  - MUSCULOSKELETAL PAIN [None]
  - ATROPHY [None]
  - PAIN IN EXTREMITY [None]
  - BACK PAIN [None]
  - ARTHRALGIA [None]
